FAERS Safety Report 9563812 (Version 1)
Quarter: 2013Q3

REPORT INFORMATION
  Report Type: Spontaneous
  Country: US (occurrence: None)
  Receive Date: 20130926
  Receipt Date: 20130926
  Transmission Date: 20140515
  Serious: Yes (Death, Other)
  Sender: FDA-Public Use
  Company Number: FK201304288

PATIENT
  Age: 2 Month
  Sex: Male

DRUGS (3)
  1. FUROSEMIDE [Suspect]
     Indication: POLYURIA
  2. CHLOROTHIAZIDE [Suspect]
     Indication: POLYURIA
  3. ENALAPRIL [Suspect]
     Indication: PROTEINURIA
     Route: 048

REACTIONS (4)
  - Pulmonary hypertension [None]
  - Respiratory failure [None]
  - Renal failure acute [None]
  - Hypotension [None]
